FAERS Safety Report 5910937-X (Version None)
Quarter: 2008Q4

REPORT INFORMATION
  Report Type: 
  Country: None (occurrence: None)
  Receive Date: 20081007
  Receipt Date: 20080714
  Transmission Date: 20090506
  Serious: No
  Sender: FDA-Public Use
  Company Number: US-ASTRAZENECA-2008UW14091

PATIENT
  Age: 67 Year
  Sex: Female

DRUGS (8)
  1. ARIMIDEX [Suspect]
     Indication: BREAST CANCER FEMALE
     Route: 048
  2. VITAMIN E [Concomitant]
  3. COUMADIN [Concomitant]
  4. GENUVIA [Concomitant]
  5. VYTORIN [Concomitant]
  6. CALCIUM [Concomitant]
  7. LISINOPRIL [Concomitant]
     Route: 048
  8. SOTALOL [Concomitant]

REACTIONS (6)
  - ALOPECIA [None]
  - DIARRHOEA [None]
  - DRY MOUTH [None]
  - HEADACHE [None]
  - HEART RATE INCREASED [None]
  - HOT FLUSH [None]
